FAERS Safety Report 26208407 (Version 1)
Quarter: 2025Q4

REPORT INFORMATION
  Report Type: Spontaneous
  Country: US (occurrence: None)
  Receive Date: 20251227
  Receipt Date: 20251227
  Transmission Date: 20260118
  Serious: No
  Sender: FDA-CTU
  Company Number: None

PATIENT
  Sex: Female

DRUGS (1)
  1. SCEMBLIX [Suspect]
     Active Substance: ASCIMINIB HYDROCHLORIDE
     Indication: Chronic myeloid leukaemia
     Dosage: FREQUENCY : DAILY;
     Route: 048
     Dates: start: 20251205

REACTIONS (5)
  - Fall [None]
  - Skin laceration [None]
  - Limb discomfort [None]
  - Ligament injury [None]
  - Blood pressure increased [None]
